FAERS Safety Report 5025758-2 (Version None)
Quarter: 2006Q2

REPORT INFORMATION
  Report Type: 
  Country: None (occurrence: None)
  Receive Date: 20060609
  Receipt Date: 20060609
  Transmission Date: 20061013
  Serious: Yes (Hospitalization)
  Sender: FDA-Public Use
  Company Number: None

PATIENT
  Sex: Female
  Weight: 49.9 kg

DRUGS (11)
  1. OXALIPLATIN [Suspect]
     Dosage: 198 MG IV Q 3 WK
     Route: 042
     Dates: start: 20060523
  2. CAPECITABINE [Suspect]
     Dosage: 1300 MG PO BID
     Route: 048
     Dates: start: 20060523, end: 20060605
  3. ATIVAN [Concomitant]
  4. CEPHALEXIN [Concomitant]
  5. DECADRON [Concomitant]
  6. DILAUDID [Concomitant]
  7. METHADONE HCL [Concomitant]
  8. NEURONTIN [Concomitant]
  9. RITALIN [Concomitant]
  10. SYNTHROID [Concomitant]
  11. ZOFRAN [Concomitant]

REACTIONS (5)
  - DEHYDRATION [None]
  - HEADACHE [None]
  - NAUSEA [None]
  - PAIN [None]
  - VOMITING [None]
